FAERS Safety Report 8888667 (Version 2)
Quarter: 2012Q4

REPORT INFORMATION
  Report Type: 
  Country: US (occurrence: US)
  Receive Date: 20121106
  Receipt Date: 20121126
  Transmission Date: 20130627
  Serious: Yes (Death)
  Sender: FDA-Public Use
  Company Number: US-GLAXOSMITHKLINE-A0999449A

PATIENT
  Age: 54 Year
  Sex: Female

DRUGS (13)
  1. ADVAIR [Suspect]
     Indication: ASTHMA
     Dosage: 1PUFF Twice per day
     Route: 055
     Dates: start: 20090715, end: 20121030
  2. BYETTA [Concomitant]
  3. SPIRIVA [Concomitant]
  4. CARISOPRODOL [Concomitant]
  5. UNKNOWN MEDICATION [Concomitant]
  6. SEROQUEL [Concomitant]
  7. GABAPENTIN [Concomitant]
  8. CLARINEX [Concomitant]
  9. METFORMIN [Concomitant]
  10. HCTZ [Concomitant]
  11. DEXILANT [Concomitant]
  12. PROAIR HFA [Concomitant]
  13. LANTUS [Concomitant]

REACTIONS (1)
  - Myocardial infarction [Fatal]
